FAERS Safety Report 5483539-X (Version None)
Quarter: 2007Q4

REPORT INFORMATION
  Report Type: 
  Country: None (occurrence: None)
  Receive Date: 20071009
  Receipt Date: 20070929
  Transmission Date: 20080405
  Serious: Yes (Death, Hospitalization, Other)
  Sender: FDA-Public Use
  Company Number: 2007-03250

PATIENT
  Age: 70 Year
  Sex: Female

DRUGS (2)
  1. VELCADE [Suspect]
     Indication: MULTIPLE MYELOMA
     Dates: start: 20070924, end: 20070924
  2. VELCADE [Suspect]
     Indication: MULTIPLE MYELOMA
     Dates: start: 20070927, end: 20070927

REACTIONS (10)
  - ACIDOSIS [None]
  - ANURIA [None]
  - DIALYSIS [None]
  - HAEMATOCRIT DECREASED [None]
  - HAEMOGLOBIN DECREASED [None]
  - NECROTISING FASCIITIS [None]
  - PLATELET COUNT DECREASED [None]
  - PSEUDOMONAL BACTERAEMIA [None]
  - SEPSIS [None]
  - WHITE BLOOD CELL COUNT DECREASED [None]
